FAERS Safety Report 7758966 (Version 4)
Quarter: 2014Q1

REPORT INFORMATION
  Report Type: Spontaneous
  Country: US (occurrence: US)
  Receive Date: 20110113
  Receipt Date: 20140121
  Transmission Date: 20141002
  Serious: No
  Sender: FDA-Public Use
  Company Number: US-BIOGENIDEC-2011BI001227

PATIENT
  Age: 33 Year
  Sex: Male

DRUGS (5)
  1. TYSABRI [Suspect]
     Indication: MULTIPLE SCLEROSIS
     Route: 042
     Dates: start: 20101214, end: 201108
  2. TYSABRI [Suspect]
     Indication: MULTIPLE SCLEROSIS
     Route: 042
  3. VALIUM [Concomitant]
  4. ATIVAN [Concomitant]
  5. MEDICATION (NOS) [Concomitant]
     Indication: CONVULSION

REACTIONS (6)
  - Anxiety [Recovered/Resolved]
  - Dysphemia [Recovered/Resolved]
  - Balance disorder [Recovered/Resolved]
  - Depression [Unknown]
  - Drug abuse [Unknown]
  - Headache [Recovered/Resolved]
